FAERS Safety Report 4398198-7 (Version None)
Quarter: 2004Q3

REPORT INFORMATION
  Report Type: 
  Country: None (occurrence: None)
  Receive Date: 20040715
  Receipt Date: 20040706
  Transmission Date: 20050211
  Serious: Yes (Hospitalization)
  Sender: FDA-Public Use
  Company Number: US-BRISTOL-MYERS SQUIBB COMPANY-12632428

PATIENT
  Age: 80 Year
  Sex: Female
  Weight: 66 kg

DRUGS (8)
  1. COUMADIN [Suspect]
     Indication: ATRIAL FIBRILLATION
     Dosage: 2.5 MG X 5 DAYS + 1.25 MG X 2 DAYS = 15.0 PER WK
     Route: 048
     Dates: start: 20040501
  2. COUMADIN [Suspect]
     Indication: CEREBROVASCULAR ACCIDENT
     Dosage: 2.5 MG X 5 DAYS + 1.25 MG X 2 DAYS = 15.0 PER WK
     Route: 048
     Dates: start: 20040501
  3. CARDIZEM [Concomitant]
  4. ALTACE [Concomitant]
  5. LASIX [Concomitant]
  6. ASPIRIN [Concomitant]
  7. ACETAMINOPHEN [Concomitant]
  8. CAFFEINE [Concomitant]

REACTIONS (5)
  - DESQUAMATION MOUTH [None]
  - INTERNATIONAL NORMALISED RATIO ABNORMAL [None]
  - OEDEMA MOUTH [None]
  - RESTLESS LEGS SYNDROME [None]
  - SWOLLEN TONGUE [None]
